FAERS Safety Report 12709016 (Version 1)
Quarter: 2016Q3

REPORT INFORMATION
  Report Type: Spontaneous
  Country: US (occurrence: US)
  Receive Date: 20160901
  Receipt Date: 20160901
  Transmission Date: 20161109
  Serious: No
  Sender: FDA-Public Use
  Company Number: US-JAZZ-2016-US-008665

PATIENT
  Sex: Female

DRUGS (28)
  1. XYREM [Suspect]
     Active Substance: SODIUM OXYBATE
     Indication: NARCOLEPSY
     Dosage: 2.25 G, BID
     Route: 048
     Dates: start: 201309, end: 201310
  2. XYREM [Suspect]
     Active Substance: SODIUM OXYBATE
     Dosage: DOSE ADJUSTMENT
     Route: 048
  3. TRAZODONE HYDROCHLORIDE. [Concomitant]
     Active Substance: TRAZODONE HYDROCHLORIDE
  4. DIAZEPAM. [Concomitant]
     Active Substance: DIAZEPAM
  5. MODAFINIL. [Concomitant]
     Active Substance: MODAFINIL
  6. ADVAIR HFA [Concomitant]
     Active Substance: FLUTICASONE PROPIONATE\SALMETEROL XINAFOATE
  7. IMITREX [Concomitant]
     Active Substance: SUMATRIPTAN SUCCINATE
  8. LAMOTRIGINE. [Concomitant]
     Active Substance: LAMOTRIGINE
  9. CYMBALTA [Concomitant]
     Active Substance: DULOXETINE HYDROCHLORIDE
  10. ESTRADIOL. [Concomitant]
     Active Substance: ESTRADIOL
  11. NUVIGIL [Concomitant]
     Active Substance: ARMODAFINIL
  12. TOPIRAMATE. [Concomitant]
     Active Substance: TOPIRAMATE
  13. GABAPENTIN. [Concomitant]
     Active Substance: GABAPENTIN
  14. TRANSDERM SCOP [Concomitant]
     Active Substance: SCOPOLAMINE
  15. ZYPREXA [Concomitant]
     Active Substance: OLANZAPINE
  16. METHADONE HCL [Concomitant]
     Active Substance: METHADONE HYDROCHLORIDE
  17. ASPIRIN. [Concomitant]
     Active Substance: ASPIRIN
  18. TERBINAFINE. [Concomitant]
     Active Substance: TERBINAFINE
  19. ONDANSETRON [Concomitant]
     Active Substance: ONDANSETRON
  20. LEVOTHYROXINE. [Concomitant]
     Active Substance: LEVOTHYROXINE
  21. RITALIN [Concomitant]
     Active Substance: METHYLPHENIDATE HYDROCHLORIDE
  22. XYREM [Suspect]
     Active Substance: SODIUM OXYBATE
     Dosage: 4.75 G, FIRST DOSE
     Route: 048
     Dates: start: 201601
  23. XYREM [Suspect]
     Active Substance: SODIUM OXYBATE
     Dosage: 3.75 G, SECOND DOSE
     Route: 048
     Dates: start: 201601
  24. HORIZANT [Concomitant]
     Active Substance: GABAPENTIN ENACARBIL
  25. LATUDA [Concomitant]
     Active Substance: LURASIDONE HYDROCHLORIDE
  26. CLONAZEPAM. [Concomitant]
     Active Substance: CLONAZEPAM
  27. PRAMIPEXOLE. [Concomitant]
     Active Substance: PRAMIPEXOLE
  28. ALBUTEROL SULFATE. [Concomitant]
     Active Substance: ALBUTEROL SULFATE

REACTIONS (2)
  - Decubitus ulcer [Not Recovered/Not Resolved]
  - Weight decreased [Unknown]
